FAERS Safety Report 8341675-4 (Version None)
Quarter: 2012Q2

REPORT INFORMATION
  Report Type: 
  Country: None (occurrence: None)
  Receive Date: 20120507
  Receipt Date: 20120503
  Transmission Date: 20120825
  Serious: Yes (Death)
  Sender: FDA-Public Use
  Company Number: CO-PFIZER INC-2012109786

PATIENT
  Sex: Female

DRUGS (6)
  1. ASPIRIN [Concomitant]
     Dosage: 100 MG, ONCE DAILY
  2. LIPITOR [Suspect]
     Dosage: 20 MG, ONCE DAILY
     Route: 048
     Dates: start: 20040916
  3. OLMESARTAN MEDOXOMIL AND HYDROCHLOROTHIZIDE [Suspect]
     Indication: HYPERTENSION
     Dosage: [OLMESARTAN MEDOXOMIL 20 MG]/[ HYDROCHLOROTHIAZIDE 12.5 MG], DAILY
     Dates: start: 20040916
  4. LOVASTATIN [Concomitant]
     Dosage: 20 MG, ONCE DAILY
  5. GLIBENCLAMIDE [Concomitant]
     Dosage: 5 MG, EVERY 12 HOURS
  6. AMLODIPINE [Concomitant]
     Dosage: 5 MG EVERY 12 HOURS

REACTIONS (1)
  - DEATH [None]
